FAERS Safety Report 7836597-9 (Version None)
Quarter: 2011Q4

REPORT INFORMATION
  Report Type: 
  Country: None (occurrence: None)
  Receive Date: 20111024
  Receipt Date: 20110627
  Transmission Date: 20120403
  Serious: No
  Sender: FDA-Public Use
  Company Number: US-ABBOTT-11P-163-0836349-00

PATIENT
  Sex: Female
  Weight: 72.64 kg

DRUGS (3)
  1. LUPRON DEPOT [Suspect]
     Indication: ENDOMETRIOSIS
     Route: 050
     Dates: start: 20110301
  2. NORITHINDRONE [Concomitant]
     Indication: ADJUVANT THERAPY
     Route: 048
  3. LUPRON DEPOT [Suspect]
     Indication: ENDOMETRIOSIS

REACTIONS (10)
  - HYPOTENSION [None]
  - INCREASED APPETITE [None]
  - GASTROOESOPHAGEAL REFLUX DISEASE [None]
  - CHEST PAIN [None]
  - FATIGUE [None]
  - HYPERPHAGIA [None]
  - LOSS OF CONSCIOUSNESS [None]
  - PALPITATIONS [None]
  - OESOPHAGEAL SPASM [None]
  - ASTHENIA [None]
